FAERS Safety Report 8563008 (Version 2)
Quarter: 2014Q3

REPORT INFORMATION
  Report Type: Report from Study
  Country: US (occurrence: US)
  Receive Date: 20120515
  Receipt Date: 20140917
  Transmission Date: 20150326
  Serious: Yes (Hospitalization, Other)
  Sender: FDA-Public Use
  Company Number: US-BRISTOL-MYERS SQUIBB COMPANY-16578742

PATIENT
  Age: 71 Year
  Sex: Female

DRUGS (2)
  1. ORENCIA [Suspect]
     Active Substance: ABATACEPT
     Dosage: INTERRUPTED AND RESTARTED?LAST INFUSION: 24APR2012
  2. PREDNISONE. [Concomitant]
     Active Substance: PREDNISONE

REACTIONS (5)
  - Drug ineffective [Unknown]
  - Staphylococcal infection [Unknown]
  - Hip arthroplasty [Unknown]
  - Breast prosthesis removal [Unknown]
  - Arthropathy [Unknown]

NARRATIVE: CASE EVENT DATE: 201405
